FAERS Safety Report 7250702-7 (Version None)
Quarter: 2011Q1

REPORT INFORMATION
  Report Type: 
  Country: None (occurrence: None)
  Receive Date: 20110128
  Receipt Date: 20110124
  Transmission Date: 20110831
  Serious: Yes (Death, Other)
  Sender: FDA-Public Use
  Company Number: PHHY2011CN05410

PATIENT
  Age: 13 Year
  Sex: Male

DRUGS (24)
  1. CYCLOSPORINE [Suspect]
     Dosage: 5-8 MG/KG
  2. IMIPENEM [Concomitant]
  3. ACYCLOVIR [Concomitant]
  4. G-CSF [Concomitant]
     Dosage: 10-15 UG/KG/DAY
  5. HETASTARCH IN SODIUM CHLORIDE [Concomitant]
  6. FLUDARA [Concomitant]
     Dosage: 150 MG/M2
  7. HYDRATION THERAPY [Concomitant]
     Dosage: 3000-3500 ML/M2/DAY
  8. SODIUM 2-MERCAPTOETHANE SULFONATE [Concomitant]
  9. MEROPENEM [Concomitant]
  10. CYCLOPHOSPHAMIDE [Concomitant]
     Dosage: 120 MG/M2
  11. GANCICLOVIR [Concomitant]
     Dosage: 5 MG/KG
  12. TRIMETHOPRIM [Concomitant]
  13. ITRACONAZOLE [Concomitant]
     Indication: ANTIFUNGAL PROPHYLAXIS
     Route: 048
  14. ANTIBIOTICS [Concomitant]
  15. DIURETICS [Concomitant]
     Dosage: 3 ML/KG/ HOUR
  16. VORICONAZOLE [Concomitant]
  17. AMPHOTERICIN B [Concomitant]
  18. CYCLOSPORINE [Suspect]
     Indication: STEM CELL TRANSPLANT
     Dosage: 3 MG/KG,
     Route: 042
  19. ANTI-THYMOCYTE GLOBULIN RABBIT NOS [Concomitant]
     Dosage: 22.5 MG/M2, UNK
  20. MTX [Concomitant]
     Indication: PROPHYLAXIS AGAINST GRAFT VERSUS HOST DISEASE
     Dosage: 10 MG/M2,
  21. GANCICLOVIR [Concomitant]
     Dosage: 10 MG/KG
  22. SULFAMETHOXAZOLE [Concomitant]
  23. PIPERACILLIN [Concomitant]
  24. VANCOMYCIN [Concomitant]

REACTIONS (13)
  - RESPIRATORY FAILURE [None]
  - HYPERPYREXIA [None]
  - EPISTAXIS [None]
  - DIARRHOEA [None]
  - BONE MARROW TRANSPLANT REJECTION [None]
  - INFECTION [None]
  - WHITE BLOOD CELL COUNT DECREASED [None]
  - RASH [None]
  - JAUNDICE [None]
  - SUBCUTANEOUS ABSCESS [None]
  - HEPATIC FUNCTION ABNORMAL [None]
  - APLASTIC ANAEMIA [None]
  - PLATELET COUNT DECREASED [None]
